FAERS Safety Report 19904588 (Version 1)
Quarter: 2021Q3

REPORT INFORMATION
  Report Type: Spontaneous
  Country: US (occurrence: US)
  Receive Date: 20210930
  Receipt Date: 20210930
  Transmission Date: 20211014
  Serious: Yes (Hospitalization, Other)
  Sender: FDA-Public Use
  Company Number: US-SLATE RUN PHARMACEUTICALS-21US000695

PATIENT

DRUGS (2)
  1. SERTRALINE [Suspect]
     Active Substance: SERTRALINE HYDROCHLORIDE
     Indication: INTENTIONAL OVERDOSE
     Route: 048
  2. BUPROPION HYDROCHLORIDE EXTENDED RELEASE USP (XL) [Suspect]
     Active Substance: BUPROPION HYDROCHLORIDE
     Indication: INTENTIONAL OVERDOSE
     Dosage: UNK
     Route: 048

REACTIONS (7)
  - Anterograde amnesia [Unknown]
  - Intentional overdose [Recovering/Resolving]
  - Myoclonus [Recovering/Resolving]
  - Metabolic encephalopathy [Recovering/Resolving]
  - Generalised tonic-clonic seizure [Recovering/Resolving]
  - Electroencephalogram abnormal [Recovering/Resolving]
  - Coma [Recovering/Resolving]
